FAERS Safety Report 12156413 (Version 3)
Quarter: 2016Q1

REPORT INFORMATION
  Report Type: Spontaneous
  Country: EG (occurrence: EG)
  Receive Date: 20160307
  Receipt Date: 20160325
  Transmission Date: 20160526
  Serious: Yes (Other)
  Sender: FDA-Public Use
  Company Number: EG-PFIZER INC-2016136016

PATIENT
  Age: 5 Decade
  Sex: Female

DRUGS (1)
  1. DEPO-PROVERA [Suspect]
     Active Substance: MEDROXYPROGESTERONE ACETATE
     Indication: VAGINAL HAEMORRHAGE
     Dosage: 150 MG, SINGLE (ONE TOTAL)
     Route: 030
     Dates: start: 20160101, end: 20160101

REACTIONS (3)
  - Hepatitis [Not Recovered/Not Resolved]
  - Product use issue [Unknown]
  - Hepatic enzyme increased [Not Recovered/Not Resolved]

NARRATIVE: CASE EVENT DATE: 201601
